FAERS Safety Report 21246179 (Version 1)
Quarter: 2022Q3

REPORT INFORMATION
  Report Type: Spontaneous
  Country: GB (occurrence: GB)
  Receive Date: 20220824
  Receipt Date: 20220824
  Transmission Date: 20221027
  Serious: Yes (Other)
  Sender: FDA-Public Use
  Company Number: GB-MHRA-MED-202208111713036550-MBHCV

PATIENT
  Age: 22 Year
  Sex: Female

DRUGS (2)
  1. AMOXICILLIN [Suspect]
     Active Substance: AMOXICILLIN
     Indication: Product used for unknown indication
     Dosage: UNKNOWN
     Route: 065
  2. AMOXICILLIN TRIHYDRATE [Suspect]
     Active Substance: AMOXICILLIN
     Indication: Asthma
     Dosage: 500 MILLIGRAM, 3 TIMES A DAY
     Route: 065
     Dates: start: 20220804

REACTIONS (9)
  - Oral candidiasis [Not Recovered/Not Resolved]
  - Diarrhoea [Not Recovered/Not Resolved]
  - Crying [Not Recovered/Not Resolved]
  - Cold sweat [Not Recovered/Not Resolved]
  - Migraine [Not Recovered/Not Resolved]
  - Abdominal pain [Not Recovered/Not Resolved]
  - Body temperature increased [Not Recovered/Not Resolved]
  - Fatigue [Not Recovered/Not Resolved]
  - Maternal exposure during breast feeding [Unknown]

NARRATIVE: CASE EVENT DATE: 20220809
